FAERS Safety Report 20363800 (Version 1)
Quarter: 2022Q1

REPORT INFORMATION
  Report Type: Spontaneous
  Country: DE (occurrence: None)
  Receive Date: 20220121
  Receipt Date: 20220121
  Transmission Date: 20220423
  Serious: Yes (Hospitalization, Other)
  Sender: FDA-Public Use
  Company Number: 2022A032143

PATIENT
  Age: 74 Year
  Sex: Male
  Weight: 70 kg

DRUGS (6)
  1. ROSUVASTATIN [Suspect]
     Active Substance: ROSUVASTATIN
     Route: 048
  2. RAMIPRIL [Concomitant]
     Active Substance: RAMIPRIL
     Dates: end: 20211120
  3. ENTRESTO [Concomitant]
     Active Substance: SACUBITRIL\VALSARTAN
     Dosage: 49/51 1-0-1
     Dates: start: 20211120
  4. BISOPROLOL [Concomitant]
     Active Substance: BISOPROLOL
     Dosage: 2.5 1-0-1
  5. TORSEMIDE [Concomitant]
     Active Substance: TORSEMIDE
     Dosage: 10 MG IN DEMAND 1-0-0
  6. EPLENERONE [Concomitant]

REACTIONS (8)
  - Dyspnoea exertional [Unknown]
  - Cardiac failure chronic [Unknown]
  - General physical health deterioration [Unknown]
  - COVID-19 [Unknown]
  - Myocarditis [Unknown]
  - Atrioventricular block first degree [Unknown]
  - Pericardial effusion [Unknown]
  - Oedema peripheral [Unknown]

NARRATIVE: CASE EVENT DATE: 20201101
